FAERS Safety Report 6733851-9 (Version None)
Quarter: 2010Q2

REPORT INFORMATION
  Report Type: 
  Country: None (occurrence: None)
  Receive Date: 20100520
  Receipt Date: 20100505
  Transmission Date: 20101027
  Serious: No
  Sender: FDA-Public Use
  Company Number: US-ROCHE-682207

PATIENT
  Age: 67 Year
  Sex: Male
  Weight: 87.1 kg

DRUGS (3)
  1. BONIVA [Suspect]
     Route: 065
  2. NORVASC [Concomitant]
  3. DIOVAN [Concomitant]

REACTIONS (3)
  - BONE PAIN [None]
  - FEELINGS OF WORTHLESSNESS [None]
  - RENAL PAIN [None]
